FAERS Safety Report 25498501 (Version 2)
Quarter: 2025Q3

REPORT INFORMATION
  Report Type: Spontaneous
  Country: JP (occurrence: JP)
  Receive Date: 20250701
  Receipt Date: 20250716
  Transmission Date: 20251021
  Serious: Yes (Other)
  Sender: BAXTER
  Company Number: JP-shionogi-202500006465

PATIENT
  Age: 44 Year
  Sex: Male

DRUGS (4)
  1. MESNA [Suspect]
     Active Substance: MESNA
     Indication: Prophylaxis
     Route: 065
  2. IFOSFAMIDE [Suspect]
     Active Substance: IFOSFAMIDE
     Indication: Product used for unknown indication
     Dosage: 5000 MG/M2, QD, ICE THERAPY
     Route: 041
  3. ETOPOSIDE [Suspect]
     Active Substance: ETOPOSIDE
     Indication: Product used for unknown indication
     Route: 065
  4. CARBOPLATIN [Concomitant]
     Active Substance: CARBOPLATIN
     Indication: Product used for unknown indication
     Route: 065

REACTIONS (4)
  - Cystitis haemorrhagic [Recovering/Resolving]
  - Taste disorder [Recovering/Resolving]
  - Haemorrhage [Recovering/Resolving]
  - Nausea [Recovering/Resolving]
